FAERS Safety Report 4522257-9 (Version None)
Quarter: 2004Q4

REPORT INFORMATION
  Report Type: 
  Country: None (occurrence: None)
  Receive Date: 20041207
  Receipt Date: 20041119
  Transmission Date: 20050328
  Serious: Yes (Other)
  Sender: FDA-Public Use
  Company Number: USA041184160

PATIENT
  Age: 60 Year
  Sex: Female

DRUGS (5)
  1. XIGRIS [Suspect]
     Indication: SEPSIS
     Dates: start: 20041107, end: 20041110
  2. PRESSORS [Concomitant]
  3. ANTIBIOTICS [Concomitant]
  4. STEROIDS [Concomitant]
  5. ANTI FUNGALS [Concomitant]

REACTIONS (3)
  - ANURIA [None]
  - GASTROINTESTINAL DISORDER [None]
  - HAEMODIALYSIS [None]
